FAERS Safety Report 14425672 (Version 1)
Quarter: 2018Q1

REPORT INFORMATION
  Report Type: Spontaneous
  Country: US (occurrence: US)
  Receive Date: 20180122
  Receipt Date: 20180122
  Transmission Date: 20180509
  Serious: No
  Sender: FDA-Public Use
  Company Number: None

PATIENT
  Age: 48 Year
  Sex: Female
  Weight: 74.25 kg

DRUGS (4)
  1. EQUATE TIOCONAZOLE 1 DAY [Suspect]
     Active Substance: TIOCONAZOLE
     Indication: FUNGAL INFECTION
     Dosage: QUANTITY:1 SUPPOSITORY(IES); AT BEDTIME?
     Route: 067
     Dates: start: 20180121, end: 20180121
  2. MULTI-VITAMINS [Concomitant]
  3. PROBIOTIC [Concomitant]
     Active Substance: PROBIOTICS NOS
  4. VITAMIN D [Concomitant]
     Active Substance: CHOLECALCIFEROL

REACTIONS (3)
  - Dyspnoea [None]
  - Dysphagia [None]
  - Throat irritation [None]

NARRATIVE: CASE EVENT DATE: 20180121
